FAERS Safety Report 9127686 (Version 1)
Quarter: 2013Q1

REPORT INFORMATION
  Report Type: Spontaneous
  Country: PH (occurrence: PH)
  Receive Date: 20130122
  Receipt Date: 20130122
  Transmission Date: 20140127
  Serious: Yes (Death, Hospitalization)
  Sender: FDA-Public Use
  Company Number: PH-009507513-1301PHL008400

PATIENT
  Age: 66 Year
  Sex: Female

DRUGS (2)
  1. JANUMET [Suspect]
     Indication: DIABETES MELLITUS MANAGEMENT
     Dosage: 50/1000 MG TWICE DAILY
     Dates: start: 201110
  2. MAREVAN [Concomitant]

REACTIONS (6)
  - Cerebrovascular accident [Fatal]
  - Cardiac disorder [Fatal]
  - Arterial occlusive disease [Unknown]
  - Stent placement [Unknown]
  - Pneumonia [Unknown]
  - Blood glucose increased [Unknown]
